FAERS Safety Report 20112195 (Version 3)
Quarter: 2022Q1

REPORT INFORMATION
  Report Type: Spontaneous
  Country: EG (occurrence: EG)
  Receive Date: 20211125
  Receipt Date: 20220119
  Transmission Date: 20220423
  Serious: Yes (Hospitalization, Other)
  Sender: FDA-Public Use
  Company Number: EG-NOVOPROD-867579

PATIENT
  Age: 60 Year
  Sex: Female
  Weight: 118 kg

DRUGS (7)
  1. INSULIN HUMAN [Suspect]
     Active Substance: INSULIN HUMAN
     Dosage: 70 IU, QD (50IU IN MORNING AND 20 IU IN NIGHT)
     Route: 058
  2. INSULIN HUMAN [Suspect]
     Active Substance: INSULIN HUMAN
     Indication: Type 1 diabetes mellitus
     Dosage: 80 IU, QD (40 U MORNING  / 40 U NIGHT)
     Route: 058
  3. VILDAGLUSE PLUS [Concomitant]
     Indication: Type 1 diabetes mellitus
     Dosage: 50 MG(STARTED 1 YEAR AGO AND ONGOING)
     Route: 065
  4. VALPROATE SODIUM [Concomitant]
     Active Substance: VALPROATE SODIUM
     Indication: Partial seizures
  5. VALPROATE SODIUM [Concomitant]
     Active Substance: VALPROATE SODIUM
     Indication: Nervousness
     Dosage: UNK (TWICE DAILY)
     Route: 065
  6. TRENTAL [Concomitant]
     Active Substance: PENTOXIFYLLINE
     Indication: Partial seizures
  7. TRENTAL [Concomitant]
     Active Substance: PENTOXIFYLLINE
     Indication: Nervousness
     Dosage: UNK (TWICE DAILY)
     Route: 065

REACTIONS (4)
  - Visual impairment [Recovered/Resolved]
  - Visual impairment [Recovered/Resolved]
  - Glycosylated haemoglobin increased [Unknown]
  - Drug ineffective [Unknown]

NARRATIVE: CASE EVENT DATE: 20210220
